FAERS Safety Report 15487730 (Version 1)
Quarter: 2018Q4

REPORT INFORMATION
  Report Type: Spontaneous
  Country: ZA (occurrence: ZA)
  Receive Date: 20181011
  Receipt Date: 20181011
  Transmission Date: 20190205
  Serious: Yes (Hospitalization)
  Sender: FDA-Public Use
  Company Number: ZA-PROVELL PHARMACEUTICALS-2055922

PATIENT
  Sex: Female

DRUGS (6)
  1. TRUSTAN [Suspect]
     Active Substance: ESOMEPRAZOLE
  2. FEMIGEL (ESTADIOL) [Suspect]
     Active Substance: ESTRADIOL
  3. DORMONOCT [Suspect]
     Active Substance: LOPRAZOLAM
  4. PREMARIN [Suspect]
     Active Substance: ESTROGENS, CONJUGATED
  5. ELTROXIN [Suspect]
     Active Substance: LEVOTHYROXINE
  6. EUTHYROX [Suspect]
     Active Substance: LEVOTHYROXINE SODIUM
     Indication: PRODUCT USED FOR UNKNOWN INDICATION

REACTIONS (1)
  - Meniscus injury [Unknown]
